FAERS Safety Report 24402218 (Version 3)
Quarter: 2024Q4

REPORT INFORMATION
  Report Type: Report from Study
  Country: US (occurrence: US)
  Receive Date: 20241007
  Receipt Date: 20241226
  Transmission Date: 20250115
  Serious: Yes (Hospitalization)
  Sender: ABBVIE
  Company Number: US-ABBVIE-5950940

PATIENT
  Age: 74 Year
  Sex: Female

DRUGS (2)
  1. VENCLEXTA [Suspect]
     Active Substance: VENETOCLAX
     Indication: Acute myeloid leukaemia
     Dosage: START DATE: 2024?STOP DATE: 2024
     Route: 048
  2. VENCLEXTA [Suspect]
     Active Substance: VENETOCLAX
     Indication: Acute myeloid leukaemia
     Dosage: STOP DATE: 2024
     Route: 048
     Dates: start: 202410

REACTIONS (8)
  - Rhinovirus infection [Recovering/Resolving]
  - Joint swelling [Unknown]
  - Nasopharyngitis [Recovering/Resolving]
  - Laboratory test abnormal [Unknown]
  - Toothache [Unknown]
  - Sinusitis [Unknown]
  - Neutropenia [Unknown]
  - Constipation [Unknown]

NARRATIVE: CASE EVENT DATE: 20240101
